FAERS Safety Report 7359648-7 (Version None)
Quarter: 2011Q1

REPORT INFORMATION
  Report Type: 
  Country: None (occurrence: None)
  Receive Date: 20110317
  Receipt Date: 20100513
  Transmission Date: 20110831
  Serious: No
  Sender: FDA-Public Use
  Company Number: US-PFIZER INC-2010061118

PATIENT
  Sex: Female
  Weight: 87 kg

DRUGS (4)
  1. SYNTHROID [Concomitant]
     Indication: BASEDOW'S DISEASE
     Dosage: UNK, DAILY
  2. AMITRIPTYLINE [Concomitant]
     Dosage: UNK, 1X/DAY
  3. VALIUM [Concomitant]
     Dosage: 10 MG, 1X/DAY
  4. AMLODIPINE BESYLATE [Suspect]
     Indication: HYPERTENSION
     Dosage: 2.5 MG, DAILY
     Route: 048
     Dates: start: 20100423

REACTIONS (2)
  - BLOOD PRESSURE FLUCTUATION [None]
  - INSOMNIA [None]
